FAERS Safety Report 16090952 (Version 6)
Quarter: 2023Q2

REPORT INFORMATION
  Report Type: Report from Study
  Country: FR (occurrence: FR)
  Receive Date: 20190319
  Receipt Date: 20230421
  Transmission Date: 20230722
  Serious: Yes (Death, Life-Threatening, Hospitalization, Other)
  Sender: FDA-Public Use
  Company Number: PHHY2019FR060010

PATIENT
  Age: 69 Year
  Sex: Female
  Weight: 40.1 kg

DRUGS (9)
  1. KYMRIAH [Suspect]
     Active Substance: TISAGENLECLEUCEL
     Indication: Diffuse large B-cell lymphoma
     Dosage: 2.2007 X 10^8 POSITIVE VIABLE T CELLS/KG BODY WEIGHT, ONCE/SINGLE
     Route: 042
     Dates: start: 20190110, end: 20190110
  2. LAMALINE [Concomitant]
     Indication: Pain
     Dosage: 3 DF, QD
     Route: 065
  3. VALACYCLOVIR HYDROCHLORIDE [Concomitant]
     Active Substance: VALACYCLOVIR HYDROCHLORIDE
     Indication: Infection prophylaxis
     Dosage: 500 MG, QD ( IN THE MORNING AND EVENING)
     Route: 048
  4. LEUCOVORIN CALCIUM [Concomitant]
     Active Substance: LEUCOVORIN CALCIUM
     Indication: Infection prophylaxis
     Dosage: 25 MG, (MIDDAY OF SUNDAY)
     Route: 065
  5. ALPRAZOLAM [Concomitant]
     Active Substance: ALPRAZOLAM
     Indication: Prophylaxis
     Dosage: 0.25 MG, QD (1 TABLET IN THE EVENING BEFORE BED TIME)
     Route: 048
  6. SERTRALIN ARROW [Concomitant]
     Indication: Prophylaxis
     Dosage: 50 MG, QD (IN THE MORNING)
     Route: 048
  7. VOGALENE [Concomitant]
     Active Substance: METOPIMAZINE
     Indication: Prophylaxis
     Dosage: 1 DF, QID (IF NAUSEA OCCURRED)
     Route: 065
  8. MOVICOL [Concomitant]
     Active Substance: POLYETHYLENE GLYCOL 3350\POTASSIUM CHLORIDE\SODIUM BICARBONATE\SODIUM CHLORIDE
     Indication: Prophylaxis
     Dosage: 1 DF, UNK (IF CONSTIPATION OCCURRED)
     Route: 065
  9. DOLIPRANE [Concomitant]
     Active Substance: ACETAMINOPHEN
     Indication: Pain prophylaxis
     Dosage: 1000 MG, QID IF NEEDED
     Route: 065

REACTIONS (7)
  - Death [Fatal]
  - Acute myeloid leukaemia [Not Recovered/Not Resolved]
  - Second primary malignancy [Not Recovered/Not Resolved]
  - Cytokine release syndrome [Recovered/Resolved]
  - Systemic inflammatory response syndrome [Unknown]
  - Pyrexia [Recovered/Resolved]
  - Hypotension [Recovered/Resolved]

NARRATIVE: CASE EVENT DATE: 20190111
